FAERS Safety Report 24569551 (Version 1)
Quarter: 2024Q4

REPORT INFORMATION
  Report Type: Spontaneous
  Country: US (occurrence: None)
  Receive Date: 20241031
  Receipt Date: 20241031
  Transmission Date: 20250115
  Serious: No
  Sender: Public
  Company Number: None

PATIENT
  Sex: Male

DRUGS (3)
  1. LENALIDOMIDE [Suspect]
     Active Substance: LENALIDOMIDE
     Indication: B-cell lymphoma
     Dosage: OTHER FREQUENCY : 21 DAYS, THEN 7 DAYS OFF;?
     Route: 048
     Dates: start: 202402
  2. LENALIDOMIDE [Suspect]
     Active Substance: LENALIDOMIDE
     Dosage: OTHER FREQUENCY : 10 DAYS AND 18 DAYS OFF;?
     Route: 048
  3. LENALIDOMIDE [Suspect]
     Active Substance: LENALIDOMIDE
     Dosage: OTHER FREQUENCY : DAILY FOR 21 DAYS THEN 7 DAYS OFF;?
     Route: 048

REACTIONS (2)
  - Platelet count decreased [None]
  - Therapy change [None]
